FAERS Safety Report 16995756 (Version 4)
Quarter: 2020Q3

REPORT INFORMATION
  Report Type: Spontaneous
  Country: US (occurrence: US)
  Receive Date: 20191105
  Receipt Date: 20200717
  Transmission Date: 20201102
  Serious: Yes (Other)
  Sender: FDA-Public Use
  Company Number: US-BAYER-2019-027782

PATIENT
  Age: 29 Year
  Sex: Female

DRUGS (10)
  1. ACETAMINOPHEN. [Concomitant]
     Active Substance: ACETAMINOPHEN
     Dosage: UNK
     Dates: start: 201607
  2. CYCLOBENZAPRINE. [Concomitant]
     Active Substance: CYCLOBENZAPRINE
  3. LEVOTHYROXINE. [Concomitant]
     Active Substance: LEVOTHYROXINE
     Dosage: UNK
     Dates: start: 20150825, end: 20190131
  4. FLUOXETINE [Concomitant]
     Active Substance: FLUOXETINE HYDROCHLORIDE
  5. PREDNISONE. [Concomitant]
     Active Substance: PREDNISONE
  6. WELLBUTRIN [Concomitant]
     Active Substance: BUPROPION HYDROCHLORIDE
  7. MIRENA [Suspect]
     Active Substance: LEVONORGESTREL
     Dosage: 20 ?G PER DAY, CONTINUOUSLY
     Route: 015
  8. LORATADINE. [Concomitant]
     Active Substance: LORATADINE
  9. VITAMIN D [VITAMIN D NOS] [Concomitant]
     Active Substance: VITAMIN D NOS
  10. PAXIL [Concomitant]
     Active Substance: PAROXETINE HYDROCHLORIDE

REACTIONS (21)
  - Migraine [Recovered/Resolved]
  - Vaginal haemorrhage [Recovered/Resolved]
  - Urinary tract infection [Recovered/Resolved]
  - Device ineffective [Unknown]
  - Nausea [Unknown]
  - Pregnancy with contraceptive device [Unknown]
  - Abdominal pain [Recovered/Resolved]
  - Depression [Unknown]
  - Headache [Recovered/Resolved]
  - Dysmenorrhoea [Unknown]
  - Fatigue [Unknown]
  - Alopecia [Recovered/Resolved]
  - Anxiety [Unknown]
  - Urinary tract disorder [Recovered/Resolved]
  - Menorrhagia [Recovered/Resolved]
  - Pelvic pain [Recovered/Resolved]
  - Weight increased [Recovered/Resolved]
  - Abortion spontaneous [Unknown]
  - Device dislocation [Unknown]
  - Genital haemorrhage [Recovered/Resolved]
  - Dyspareunia [Unknown]

NARRATIVE: CASE EVENT DATE: 20160617
